FAERS Safety Report 15168985 (Version 1)
Quarter: 2018Q3

REPORT INFORMATION
  Report Type: Spontaneous
  Country: ES (occurrence: ES)
  Receive Date: 20180720
  Receipt Date: 20180720
  Transmission Date: 20181010
  Serious: Yes (Other)
  Sender: FDA-Public Use
  Company Number: ES-AUROBINDO-AUR-APL-2018-036185

PATIENT
  Age: 55 Year
  Sex: Female

DRUGS (2)
  1. MEIACT [Suspect]
     Active Substance: CEFDITOREN PIVOXIL
     Indication: PNEUMONIA
     Dosage: 200 MILLIGRAM, 8 HOUR(200 MG 1?1?1 FOR 6 DAYS, THEN 1?0?1)
     Route: 048
     Dates: start: 20171122, end: 20171128
  2. AZITHROMYCIN ANHYDROUS. [Suspect]
     Active Substance: AZITHROMYCIN ANHYDROUS
     Indication: PNEUMONIA
     Dosage: UNK
     Route: 048
     Dates: start: 20171122, end: 20171127

REACTIONS (1)
  - Mixed liver injury [Recovered/Resolved]

NARRATIVE: CASE EVENT DATE: 20171127
